FAERS Safety Report 24271474 (Version 1)
Quarter: 2024Q3

REPORT INFORMATION
  Report Type: Spontaneous
  Country: AU (occurrence: AU)
  Receive Date: 20240901
  Receipt Date: 20240901
  Transmission Date: 20241016
  Serious: Yes (Other)
  Sender: MERCK
  Company Number: AU-Eisai-EC-2024-163198

PATIENT
  Age: 71 Year
  Sex: Female

DRUGS (2)
  1. PEMBROLIZUMAB [Suspect]
     Active Substance: PEMBROLIZUMAB
     Indication: Endometrial cancer
     Dosage: UNK
  2. LENVATINIB MESYLATE [Suspect]
     Active Substance: LENVATINIB MESYLATE
     Indication: Endometrial cancer
     Dosage: 14 MILLIGRAM, QD
     Route: 048

REACTIONS (5)
  - Cytopenia [Recovering/Resolving]
  - Fatigue [Recovering/Resolving]
  - Mucosal inflammation [Recovering/Resolving]
  - Rash [Recovering/Resolving]
  - Product use issue [Unknown]
